FAERS Safety Report 8889167 (Version 2)
Quarter: 2013Q1

REPORT INFORMATION
  Report Type: Report from Study
  Country: US (occurrence: US)
  Receive Date: 20121106
  Receipt Date: 20130222
  Transmission Date: 20140127
  Serious: Yes (Other)
  Sender: FDA-Public Use
  Company Number: US-ABBOTT-12P-163-1003024-00

PATIENT
  Sex: Female

DRUGS (17)
  1. NIASPAN (COATED) [Suspect]
     Indication: BLOOD CHOLESTEROL INCREASED
     Dosage: AT BEDTIME
     Dates: start: 200610
  2. ASA [Concomitant]
     Indication: PRODUCT USED FOR UNKNOWN INDICATION
  3. LIPITOR [Concomitant]
     Indication: PRODUCT USED FOR UNKNOWN INDICATION
  4. ISOSORBIDE [Concomitant]
     Indication: PRODUCT USED FOR UNKNOWN INDICATION
  5. METOPROLOL [Concomitant]
     Indication: PRODUCT USED FOR UNKNOWN INDICATION
  6. NITRO [Concomitant]
     Indication: PRODUCT USED FOR UNKNOWN INDICATION
  7. STOOL SOFTENER [Concomitant]
     Indication: PRODUCT USED FOR UNKNOWN INDICATION
  8. TRILIPIX [Concomitant]
     Indication: PRODUCT USED FOR UNKNOWN INDICATION
  9. VITAMIN E [Concomitant]
     Indication: PRODUCT USED FOR UNKNOWN INDICATION
  10. K [Concomitant]
     Indication: PRODUCT USED FOR UNKNOWN INDICATION
  11. CALTRATE [Concomitant]
     Indication: PRODUCT USED FOR UNKNOWN INDICATION
  12. PLAVIX [Concomitant]
     Indication: PRODUCT USED FOR UNKNOWN INDICATION
  13. COQ10 [Concomitant]
     Indication: PRODUCT USED FOR UNKNOWN INDICATION
  14. ACIPHEX [Concomitant]
     Indication: PRODUCT USED FOR UNKNOWN INDICATION
  15. CLARINEX [Concomitant]
     Indication: PRODUCT USED FOR UNKNOWN INDICATION
  16. NASAL SPRAY [Concomitant]
     Indication: PRODUCT USED FOR UNKNOWN INDICATION
  17. MULTIVITAMIN [Concomitant]
     Indication: PRODUCT USED FOR UNKNOWN INDICATION

REACTIONS (3)
  - Myocardial infarction [Recovered/Resolved]
  - Pruritus [Recovered/Resolved]
  - Incorrect product storage [Unknown]
